FAERS Safety Report 9718980 (Version 1)
Quarter: 2013Q4

REPORT INFORMATION
  Report Type: Spontaneous
  Country: US (occurrence: US)
  Receive Date: 20131127
  Receipt Date: 20131127
  Transmission Date: 20140711
  Serious: Yes (Other)
  Sender: FDA-Public Use
  Company Number: US-TEVA-446688USA

PATIENT
  Sex: Female
  Weight: 63.56 kg

DRUGS (2)
  1. PARAGARD 380A [Suspect]
     Indication: CONTRACEPTION
     Route: 015
     Dates: start: 2005
  2. MOBIC [Concomitant]
     Indication: ARTHRALGIA
     Dosage: 15  DAILY;
     Route: 048

REACTIONS (4)
  - Medical device complication [Unknown]
  - Uterine tenderness [Unknown]
  - Cervix disorder [Unknown]
  - Ovarian cyst [Unknown]
